FAERS Safety Report 4880021-5 (Version None)
Quarter: 2006Q1

REPORT INFORMATION
  Report Type: 
  Country: None (occurrence: None)
  Receive Date: 20060113
  Receipt Date: 20060105
  Transmission Date: 20060701
  Serious: Yes (Hospitalization, Disabling)
  Sender: FDA-Public Use
  Company Number: PHBS2006DK00675

PATIENT
  Age: 14 Year
  Sex: Male
  Weight: 65 kg

DRUGS (6)
  1. VOLTAREN [Suspect]
     Indication: PAIN
     Dosage: 50 MG, TID
     Route: 048
  2. THIOPENTAL SODIUM [Suspect]
     Indication: ANAESTHESIA
  3. PROPOFOL [Suspect]
     Indication: ANAESTHESIA
  4. ULTIVA [Suspect]
     Indication: ANAESTHESIA
  5. FENTANYL [Suspect]
     Indication: ANAESTHESIA
  6. ACETAMINOPHEN [Concomitant]
     Dosage: 1 G, QID
     Dates: start: 20051125, end: 20051127

REACTIONS (6)
  - ABDOMINAL PAIN [None]
  - DRUG INTERACTION [None]
  - NAUSEA [None]
  - NEPHRITIS INTERSTITIAL [None]
  - RENAL FAILURE ACUTE [None]
  - VOMITING [None]
